FAERS Safety Report 25737380 (Version 3)
Quarter: 2025Q3

REPORT INFORMATION
  Report Type: Other
  Country: US (occurrence: US)
  Receive Date: 20250828
  Receipt Date: 20250925
  Transmission Date: 20251020
  Serious: Yes (Hospitalization)
  Sender: TRAVERE THERAPEUTICS
  Company Number: US-TRAVERE-2025TVT01487

PATIENT
  Age: 61 Year
  Sex: Male

DRUGS (6)
  1. FILSPARI [Suspect]
     Active Substance: SPARSENTAN
     Indication: IgA nephropathy
     Route: 048
     Dates: start: 20250419
  2. FARXIGA [Concomitant]
     Active Substance: DAPAGLIFLOZIN PROPANEDIOL
  3. AMLODIPINE [Concomitant]
     Active Substance: AMLODIPINE BESYLATE
  4. ALBUTEROL SULFATE [Concomitant]
     Active Substance: ALBUTEROL SULFATE
  5. FAMOTIDINE [Concomitant]
     Active Substance: FAMOTIDINE
  6. VITAMIN D [Concomitant]
     Active Substance: VITAMIN D NOS

REACTIONS (4)
  - Hypotension [None]
  - Loss of consciousness [Recovered/Resolved]
  - Pruritus [None]
  - Papule [Unknown]

NARRATIVE: CASE EVENT DATE: 20250730
